FAERS Safety Report 7492116-0 (Version None)
Quarter: 2011Q2

REPORT INFORMATION
  Report Type: 
  Country: None (occurrence: None)
  Receive Date: 20110519
  Receipt Date: 20110509
  Transmission Date: 20111010
  Serious: Yes (Hospitalization)
  Sender: FDA-Public Use
  Company Number: JP-GILEAD-E2B_00000557

PATIENT
  Sex: Male

DRUGS (5)
  1. URSO 250 [Concomitant]
     Indication: PRODUCT USED FOR UNKNOWN INDICATION
     Route: 048
     Dates: start: 20040101, end: 20090701
  2. HEPSERA [Suspect]
     Dosage: 10MG WEEKLY
     Dates: start: 20091201
  3. HEPSERA [Suspect]
     Indication: PRODUCT USED FOR UNKNOWN INDICATION
     Dosage: 10MG PER DAY
     Route: 048
     Dates: start: 20040401
  4. ROCALTROL [Concomitant]
     Indication: PRODUCT USED FOR UNKNOWN INDICATION
     Dosage: 1MCG TWICE PER DAY
     Route: 048
     Dates: start: 20091001
  5. LAMIVUDINE(PEPFAR) [Concomitant]
     Indication: PRODUCT USED FOR UNKNOWN INDICATION
     Dosage: 100MG PER DAY
     Route: 048
     Dates: start: 20040101

REACTIONS (18)
  - HYPOURICAEMIA [None]
  - ARTHRALGIA [None]
  - VITAMIN D DECREASED [None]
  - RENAL ATROPHY [None]
  - MUSCULOSKELETAL CHEST PAIN [None]
  - PAIN IN EXTREMITY [None]
  - CHEST PAIN [None]
  - FANCONI SYNDROME ACQUIRED [None]
  - BLOOD PHOSPHORUS DECREASED [None]
  - SCIATICA [None]
  - BLOOD ALKALINE PHOSPHATASE INCREASED [None]
  - URINE CALCIUM INCREASED [None]
  - TUBULOINTERSTITIAL NEPHRITIS [None]
  - HYPOPHOSPHATAEMIA [None]
  - RENAL IMPAIRMENT [None]
  - OSTEOMALACIA [None]
  - GLUCOSE URINE PRESENT [None]
  - AMINOACIDURIA [None]
